FAERS Safety Report 15301509 (Version 2)
Quarter: 2018Q3

REPORT INFORMATION
  Report Type: Spontaneous
  Country: CN (occurrence: CN)
  Receive Date: 20180821
  Receipt Date: 20180828
  Transmission Date: 20181010
  Serious: Yes (Other)
  Sender: FDA-Public Use
  Company Number: CN-ASTRAZENECA-2018SE96324

PATIENT
  Age: 40 Year
  Sex: Female
  Weight: 58 kg

DRUGS (8)
  1. BETALOC [Suspect]
     Active Substance: METOPROLOL TARTRATE
     Route: 065
  2. TRIMETAZIDINE [Concomitant]
     Active Substance: TRIMETAZIDINE
  3. BRILINTA [Suspect]
     Active Substance: TICAGRELOR
     Route: 048
  4. SPIRONOLACTONE. [Concomitant]
     Active Substance: SPIRONOLACTONE
  5. POTASSIUM CHLORIDE. [Concomitant]
     Active Substance: POTASSIUM CHLORIDE
  6. BAYASPIRIN [Concomitant]
     Active Substance: ASPIRIN
  7. FUROSEMIDE. [Concomitant]
     Active Substance: FUROSEMIDE
  8. CRESTOR [Suspect]
     Active Substance: ROSUVASTATIN CALCIUM
     Route: 048

REACTIONS (6)
  - Petechiae [Not Recovered/Not Resolved]
  - Fatigue [Unknown]
  - Haemorrhage subcutaneous [Recovered/Resolved]
  - Mood altered [Unknown]
  - Myocardial infarction [Unknown]
  - Tenderness [Unknown]
